FAERS Safety Report 6591225-8 (Version None)
Quarter: 2010Q1

REPORT INFORMATION
  Report Type: 
  Country: None (occurrence: None)
  Receive Date: 20100219
  Receipt Date: 20100209
  Transmission Date: 20100710
  Serious: Yes (Other)
  Sender: FDA-Public Use
  Company Number: PHHY2009CA59525

PATIENT
  Sex: Female

DRUGS (1)
  1. ACLASTA [Suspect]
     Indication: OSTEOPOROSIS
     Dosage: UNK
     Dates: start: 20081119

REACTIONS (4)
  - FALL [None]
  - RENAL INJURY [None]
  - RIB FRACTURE [None]
  - SPINAL COMPRESSION FRACTURE [None]
